FAERS Safety Report 8353973-9 (Version None)
Quarter: 2012Q2

REPORT INFORMATION
  Report Type: 
  Country: None (occurrence: None)
  Receive Date: 20120511
  Receipt Date: 20120503
  Transmission Date: 20120825
  Serious: Yes (Other)
  Sender: FDA-Public Use
  Company Number: US-EISAI INC-E3810-05513-SPO-US

PATIENT
  Sex: Female

DRUGS (5)
  1. MORPHINE SULFATE [Concomitant]
  2. OXYGEN 24 HOURS [Concomitant]
  3. ACIPHEX [Suspect]
     Route: 048
     Dates: start: 20110101
  4. ALBUTEROL [Concomitant]
  5. ACIPHEX [Suspect]
     Route: 048
     Dates: start: 19990101, end: 20110101

REACTIONS (5)
  - ANGINA PECTORIS [None]
  - GINGIVAL PAIN [None]
  - FACIAL PAIN [None]
  - CHEST PAIN [None]
  - FALL [None]
